FAERS Safety Report 8652327 (Version 3)
Quarter: 2014Q1

REPORT INFORMATION
  Report Type: Spontaneous
  Country: US (occurrence: US)
  Receive Date: 20120706
  Receipt Date: 20140114
  Transmission Date: 20141002
  Serious: Yes (Other)
  Sender: FDA-Public Use
  Company Number: US-PFIZER INC-2012161358

PATIENT
  Age: 43 Year
  Sex: Male

DRUGS (5)
  1. CHANTIX [Suspect]
     Dosage: UNK
     Dates: start: 20100101, end: 20101029
  2. CHANTIX [Suspect]
     Dosage: STARTER PACK, UNK
     Route: 048
     Dates: start: 20100313
  3. LISINOPRIL [Concomitant]
     Dosage: 10 MG, UNK
     Dates: start: 20100313, end: 20110906
  4. NAPROXEN [Concomitant]
     Dosage: 500 MG, UNK
     Dates: start: 20101015
  5. ORPHENADRINE [Concomitant]
     Dosage: 100 MG, UNK
     Dates: start: 20101015

REACTIONS (4)
  - Suicidal ideation [Unknown]
  - Depression [Unknown]
  - Anxiety [Recovering/Resolving]
  - Mental disorder [Unknown]
